FAERS Safety Report 7207365-6 (Version None)
Quarter: 2010Q4

REPORT INFORMATION
  Report Type: 
  Country: None (occurrence: None)
  Receive Date: 20101221
  Receipt Date: 20101203
  Transmission Date: 20110411
  Serious: Yes (Disabling)
  Sender: FDA-Public Use
  Company Number: 2135225-2010-00092

PATIENT
  Age: 36 Year
  Sex: Female

DRUGS (1)
  1. AETHOXYSKLEROL 3% [Suspect]
     Indication: SCLEROTHERAPY
     Dosage: 2ML AS FOAM (RATIO 1:4)

REACTIONS (6)
  - ARTERIAL OCCLUSIVE DISEASE [None]
  - ARTERIOVENOUS FISTULA [None]
  - DRUG INEFFECTIVE [None]
  - LOCALISED INFECTION [None]
  - PERIPHERAL ISCHAEMIA [None]
  - SEPSIS [None]
